FAERS Safety Report 7900405-8 (Version None)
Quarter: 2011Q4

REPORT INFORMATION
  Report Type: 
  Country: None (occurrence: None)
  Receive Date: 20111108
  Receipt Date: 20111103
  Transmission Date: 20120403
  Serious: No
  Sender: FDA-Public Use
  Company Number: US-PFIZER INC-2011270342

PATIENT
  Sex: Female
  Weight: 65.76 kg

DRUGS (9)
  1. ALAVERT [Suspect]
     Indication: RHINORRHOEA
     Dosage: 10 MG, UNK
     Route: 048
     Dates: start: 20111102
  2. ALAVERT [Suspect]
     Indication: SINUS DISORDER
  3. OMEPRAZOLE [Suspect]
     Indication: GASTROOESOPHAGEAL REFLUX DISEASE
     Dosage: 20 MG, DAILY
  4. CALCIUM CARBONATE [Suspect]
     Dosage: UNK
     Dates: start: 20111102
  5. VITAMIN TAB [Concomitant]
     Dosage: UNK
  6. LIPITOR [Concomitant]
     Indication: BLOOD CHOLESTEROL ABNORMAL
     Dosage: 10 MG, UNK
  7. AMLODIPINE [Concomitant]
     Indication: BLOOD PRESSURE ABNORMAL
     Dosage: 2.5 MG, UNK
  8. MINERALS NOS [Concomitant]
     Dosage: UNK
  9. ACETYLSALICYLIC ACID [Concomitant]
     Indication: CARDIOVASCULAR EVENT PROPHYLAXIS
     Dosage: 81 MG, DAILY

REACTIONS (2)
  - DYSPEPSIA [None]
  - SINUS HEADACHE [None]
